FAERS Safety Report 5828968-7 (Version None)
Quarter: 2008Q3

REPORT INFORMATION
  Report Type: 
  Country: None (occurrence: None)
  Receive Date: 20080731
  Receipt Date: 20080722
  Transmission Date: 20090109
  Serious: Yes (Other)
  Sender: FDA-Public Use
  Company Number: PHHY2008DE15179

PATIENT
  Sex: Female

DRUGS (3)
  1. ZOMETA [Suspect]
     Indication: METASTASES TO BONE
     Dosage: 4 MG EVERY 4 WEEKS
     Route: 042
     Dates: start: 20020801, end: 20080401
  2. ZOMETA [Suspect]
     Indication: BREAST CANCER
  3. AREDIA [Suspect]

REACTIONS (5)
  - BONE OPERATION [None]
  - DENTAL DISCOMFORT [None]
  - DENTAL OPERATION [None]
  - OSTEONECROSIS [None]
  - PLASTIC SURGERY [None]
